FAERS Safety Report 17506835 (Version 1)
Quarter: 2020Q1

REPORT INFORMATION
  Report Type: Spontaneous
  Country: RU (occurrence: RU)
  Receive Date: 20200306
  Receipt Date: 20200306
  Transmission Date: 20200409
  Serious: Yes (Other)
  Sender: FDA-Public Use
  Company Number: RU-TEVA-2020-RU-1194512

PATIENT
  Age: 29 Year
  Sex: Female
  Weight: 56 kg

DRUGS (3)
  1. DEPAKIN? CHRONOSPHERE [Suspect]
     Active Substance: VALPROIC ACID
     Indication: EPILEPSY
     Dosage: DAILY DOSE- 750 / 750 MG / 800MG / 400 MG?SINGLE DOSE - 250 / 250 MG/ 400 MG/ 200MG?THE DOSE...
     Route: 048
  2. TOPSAVER [Suspect]
     Active Substance: TOPIRAMATE
     Indication: EPILEPSY
     Dosage: DAILY DOSE- 400 / 750 MG / 800MG / 400 MG?SINGLE DOSE - 200 / 250 MG/ 400 MG/ 200MG?THE DOSE ....
     Route: 048
  3. FINLEPSIN RETARD [Suspect]
     Active Substance: CARBAMAZEPINE
     Indication: EPILEPSY
     Dosage: DAILY DOSE- 800 / 750 MG / 800MG / 400 MG?SINGLE DOSE - 400 / 250 MG/ 400 MG/ 200MG?THE DOSE ...
     Route: 048

REACTIONS (3)
  - Thrombocytopenia [Not Recovered/Not Resolved]
  - Rash [Not Recovered/Not Resolved]
  - Epilepsy [Not Recovered/Not Resolved]
